FAERS Safety Report 25562122 (Version 1)
Quarter: 2025Q3

REPORT INFORMATION
  Report Type: Spontaneous
  Country: US (occurrence: US)
  Receive Date: 20250716
  Receipt Date: 20250716
  Transmission Date: 20251021
  Serious: Yes (Other)
  Sender: ROCHE
  Company Number: US-ROCHE-10000335802

PATIENT
  Age: 40 Year
  Sex: Female
  Weight: 81.65 kg

DRUGS (5)
  1. OCREVUS [Suspect]
     Active Substance: OCRELIZUMAB
     Indication: Multiple sclerosis
     Route: 042
     Dates: start: 20250423, end: 20250507
  2. AMPYRA [Concomitant]
     Active Substance: DALFAMPRIDINE
     Dosage: MORNING/NIGHT
     Route: 048
     Dates: start: 2024
  3. CYMBALTA [Concomitant]
     Active Substance: DULOXETINE HYDROCHLORIDE
     Indication: Depression
     Route: 048
     Dates: start: 2023
  4. BUSPAR [Concomitant]
     Active Substance: BUSPIRONE HYDROCHLORIDE
     Indication: Anxiety
     Dosage: MORNING/NIGHT
     Route: 048
     Dates: start: 202502
  5. MAGNESIUM [Concomitant]
     Active Substance: MAGNESIUM

REACTIONS (5)
  - Multiple sclerosis [Unknown]
  - Pharyngeal paraesthesia [Recovered/Resolved]
  - Cough [Not Recovered/Not Resolved]
  - Oedema peripheral [Not Recovered/Not Resolved]
  - Lhermitte^s sign [Unknown]

NARRATIVE: CASE EVENT DATE: 20250423
